APPROVED DRUG PRODUCT: DRAXIMAGE MDP-10
Active Ingredient: TECHNETIUM TC-99M MEDRONATE
Strength: N/A
Dosage Form/Route: INJECTABLE;INJECTION
Application: N018035 | Product #001
Applicant: JUBILANT DRAXIMAGE INC DBA JUBILANT RADIOPHARMA
Approved: Approved Prior to Jan 1, 1982 | RLD: No | RS: No | Type: DISCN